FAERS Safety Report 8045841-7 (Version None)
Quarter: 2012Q1

REPORT INFORMATION
  Report Type: 
  Country: None (occurrence: None)
  Receive Date: 20120113
  Receipt Date: 20120104
  Transmission Date: 20120608
  Serious: Yes (Other)
  Sender: FDA-Public Use
  Company Number: CHPA2012US000536

PATIENT
  Age: 10 Year
  Sex: Male

DRUGS (7)
  1. ZOLOFT [Concomitant]
  2. TRIAMINIC NIGHT TIME COLD + COUGH [Suspect]
     Indication: NASOPHARYNGITIS
     Dosage: 1 DF, PRN
     Route: 048
  3. RISPERIDONE [Concomitant]
  4. MULTI-VITAMINS [Concomitant]
  5. ZYRTEC [Concomitant]
  6. TRIAMINIC THIN STRIPS COLD + COUGH [Suspect]
     Indication: NASOPHARYNGITIS
     Dosage: 1 DF, PRN
     Route: 048
  7. METHYLIN [Concomitant]

REACTIONS (1)
  - ATTENTION DEFICIT/HYPERACTIVITY DISORDER [None]
